FAERS Safety Report 23389426 (Version 4)
Quarter: 2024Q2

REPORT INFORMATION
  Report Type: Report from Study
  Country: CA (occurrence: CA)
  Receive Date: 20240110
  Receipt Date: 20240430
  Transmission Date: 20240716
  Serious: Yes (Hospitalization, Other)
  Sender: FDA-Public Use
  Company Number: CA-ABBVIE-5579393

PATIENT
  Age: 75 Year
  Sex: Male

DRUGS (16)
  1. VENETOCLAX [Suspect]
     Active Substance: VENETOCLAX
     Indication: Acute myeloid leukaemia
     Dosage: LAST ADMIN DATE WAS 2023
     Route: 048
     Dates: start: 20230213
  2. VENETOCLAX [Suspect]
     Active Substance: VENETOCLAX
     Indication: Acute myeloid leukaemia
     Route: 048
     Dates: start: 20230424, end: 20230507
  3. VENETOCLAX [Suspect]
     Active Substance: VENETOCLAX
     Indication: Acute myeloid leukaemia
     Route: 048
     Dates: start: 20230926, end: 20231002
  4. VENETOCLAX [Suspect]
     Active Substance: VENETOCLAX
     Indication: Acute myeloid leukaemia
     Route: 048
     Dates: start: 20230704, end: 20230710
  5. VENETOCLAX [Suspect]
     Active Substance: VENETOCLAX
     Indication: Acute myeloid leukaemia
     Dosage: LAST ADMIN DATE WAS 2023
     Route: 048
     Dates: start: 20230313
  6. VENETOCLAX [Suspect]
     Active Substance: VENETOCLAX
     Indication: Acute myeloid leukaemia
     Route: 048
     Dates: start: 20221206
  7. VENETOCLAX [Suspect]
     Active Substance: VENETOCLAX
     Indication: Acute myeloid leukaemia
     Route: 048
     Dates: start: 20230602, end: 20230608
  8. VENETOCLAX [Suspect]
     Active Substance: VENETOCLAX
     Indication: Acute myeloid leukaemia
     Route: 048
     Dates: start: 20231219, end: 20231225
  9. AZACITIDINE [Suspect]
     Active Substance: AZACITIDINE
     Indication: Acute myeloid leukaemia
     Dosage: DAY 1 DAY 4 TO DAY 7, DAY 9
     Route: 065
     Dates: start: 20230602, end: 20230612
  10. AZACITIDINE [Suspect]
     Active Substance: AZACITIDINE
     Indication: Acute myeloid leukaemia
     Dosage: STOP DATE: 2023, DAY 1 TO DAY 5 DAY 08 TO DAY 09
     Route: 065
     Dates: start: 20230213
  11. AZACITIDINE [Suspect]
     Active Substance: AZACITIDINE
     Indication: Acute myeloid leukaemia
     Route: 065
     Dates: start: 20231219, end: 20231225
  12. AZACITIDINE [Suspect]
     Active Substance: AZACITIDINE
     Indication: Acute myeloid leukaemia
     Dosage: DAY 1TO DAY 4, DAY 8 TO DAY 10
     Route: 065
     Dates: start: 20230704, end: 20230712
  13. AZACITIDINE [Suspect]
     Active Substance: AZACITIDINE
     Indication: Acute myeloid leukaemia
     Dosage: DAY 1, DAY4, DAY 8, DAY 11
     Route: 065
     Dates: start: 20230424, end: 20230502
  14. AZACITIDINE [Suspect]
     Active Substance: AZACITIDINE
     Indication: Acute myeloid leukaemia
     Dosage: DAY 1 TO DAY 5 AND DAY 08 TO DAY 09
     Route: 065
     Dates: start: 20221206, end: 20221212
  15. AZACITIDINE [Suspect]
     Active Substance: AZACITIDINE
     Indication: Acute myeloid leukaemia
     Dosage: STOP DATE: 2023, DAY 1 TO DAY 5, DAY 08 TO DAY 09
     Route: 065
     Dates: start: 20230313
  16. AZACITIDINE [Suspect]
     Active Substance: AZACITIDINE
     Indication: Acute myeloid leukaemia
     Dosage: DAY 1 TO DAY 4, DAY 9 TO DAY 11
     Route: 065
     Dates: start: 20230926, end: 20231005

REACTIONS (13)
  - Necrotising fasciitis [Not Recovered/Not Resolved]
  - Medical device implantation [Unknown]
  - Gas gangrene [Unknown]
  - Intestinal adenocarcinoma [Unknown]
  - Gas gangrene [Unknown]
  - Incarcerated inguinal hernia [Unknown]
  - Gastrointestinal disorder [Unknown]
  - Localised oedema [Unknown]
  - Inguinal hernia [Unknown]
  - Atelectasis [Recovering/Resolving]
  - Lung consolidation [Recovering/Resolving]
  - Oedema peripheral [Unknown]
  - Superinfection [Unknown]

NARRATIVE: CASE EVENT DATE: 20231228
